FAERS Safety Report 9421178 (Version 1)
Quarter: 2013Q3

REPORT INFORMATION
  Report Type: Spontaneous
  Country: ES (occurrence: None)
  Receive Date: 20130709
  Receipt Date: 20130709
  Transmission Date: 20140515
  Serious: Yes (Death, Hospitalization)
  Sender: FDA-Public Use
  Company Number: 2013036763

PATIENT
  Age: 80 Year
  Sex: Male

DRUGS (7)
  1. PRIVIGEN (IMMUNE GLOBULIN INTRAVENOUS (HUMAN) 10% LIQUID) [Suspect]
     Indication: HAEMOLYTIC ANAEMIA
     Dosage: 200 ML OF 100MG/ML
     Route: 042
     Dates: start: 20121205, end: 20121205
  2. FUROSEMIDE (FUROSEMIDE) [Suspect]
     Indication: CARDIAC FAILURE CONGESTIVE
     Route: 042
     Dates: start: 20121203, end: 20121205
  3. METHYPPREDNISOLONE (METHYLPREDNISOLONE) [Concomitant]
  4. METHYLPREDNISOLONE (METHYLPREDNISOLONE) [Concomitant]
  5. DOXYCYCLINE (DOXYCYCLINE) [Concomitant]
  6. SPIRONOLACTONE [Concomitant]
  7. HEPARIN [Concomitant]

REACTIONS (6)
  - Autoimmune haemolytic anaemia [None]
  - Coombs positive haemolytic anaemia [None]
  - Peripheral artery thrombosis [None]
  - Bradycardia [None]
  - Off label use [None]
  - Hypotension [None]
